FAERS Safety Report 9985006 (Version 1)
Quarter: 2014Q1

REPORT INFORMATION
  Report Type: Report from Study
  Country: US (occurrence: US)
  Receive Date: 20140307
  Receipt Date: 20140307
  Transmission Date: 20141002
  Serious: No
  Sender: FDA-Public Use
  Company Number: US-ABBVIE-14P-163-1186440-00

PATIENT
  Age: 78 Year
  Sex: Female

DRUGS (8)
  1. HUMIRA [Suspect]
     Indication: COLITIS ULCERATIVE
     Dosage: 4 PENS
     Dates: start: 20131220, end: 20131220
  2. HUMIRA [Suspect]
  3. SPIRONOLACTONE [Concomitant]
     Indication: HYPERTENSION
  4. MAGNESIUM OXIDE [Concomitant]
     Indication: BLOOD MAGNESIUM DECREASED
  5. PLAVIX [Concomitant]
     Indication: CARDIAC DISORDER
  6. PROPRANOLOL [Concomitant]
     Indication: PALPITATIONS
     Dosage: AS NEEDED
  7. PREDNISONE [Concomitant]
     Indication: COLITIS ULCERATIVE
  8. HYDROCHLOROTHIAZIDE [Concomitant]
     Indication: DIURETIC THERAPY

REACTIONS (4)
  - Local swelling [Recovering/Resolving]
  - Vision blurred [Not Recovered/Not Resolved]
  - Muscular weakness [Not Recovered/Not Resolved]
  - Arthralgia [Unknown]
